FAERS Safety Report 8593899-9 (Version None)
Quarter: 2012Q3

REPORT INFORMATION
  Report Type: 
  Country: None (occurrence: None)
  Receive Date: 20120814
  Receipt Date: 20120807
  Transmission Date: 20120928
  Serious: No
  Sender: FDA-Public Use
  Company Number: US-ASTRAZENECA-2012SE56187

PATIENT
  Age: 78 Year
  Sex: Male
  Weight: 72.6 kg

DRUGS (5)
  1. NEXIUM [Suspect]
     Indication: ERUCTATION
     Route: 048
     Dates: start: 20120701
  2. LISINOPRIL [Concomitant]
  3. NEXIUM [Suspect]
     Indication: FLATULENCE
     Route: 048
     Dates: start: 20120701
  4. COUMADIN [Concomitant]
  5. METOPROLOL [Concomitant]

REACTIONS (5)
  - FLATULENCE [None]
  - DRUG INEFFECTIVE FOR UNAPPROVED INDICATION [None]
  - ERUCTATION [None]
  - ABDOMINAL DISCOMFORT [None]
  - OFF LABEL USE [None]
